FAERS Safety Report 22160370 (Version 1)
Quarter: 2023Q1

REPORT INFORMATION
  Report Type: Spontaneous
  Country: FR (occurrence: None)
  Receive Date: 20230331
  Receipt Date: 20230331
  Transmission Date: 20230418
  Serious: Yes (Death)
  Sender: FDA-Public Use
  Company Number: 2023A074608

PATIENT
  Sex: Female

DRUGS (7)
  1. QUETIAPINE [Suspect]
     Active Substance: QUETIAPINE
  2. FLUVOXAMINE [Suspect]
     Active Substance: FLUVOXAMINE
  3. ALCOHOL [Suspect]
     Active Substance: ALCOHOL
  4. DIAZEPAM [Suspect]
     Active Substance: DIAZEPAM
  5. MIANSERIN HYDROCHLORIDE [Suspect]
     Active Substance: MIANSERIN HYDROCHLORIDE
  6. CARTEOLOL [Suspect]
     Active Substance: CARTEOLOL
  7. METHADONE [Suspect]
     Active Substance: METHADONE HYDROCHLORIDE

REACTIONS (1)
  - Death [Fatal]

NARRATIVE: CASE EVENT DATE: 20230201
